FAERS Safety Report 5207801-0 (Version None)
Quarter: 2006Q4

REPORT INFORMATION
  Report Type: 
  Country: None (occurrence: None)
  Receive Date: 20061030
  Receipt Date: 20060720
  Transmission Date: 20070319
  Serious: No
  Sender: FDA-Public Use
  Company Number: 2005CT000279

PATIENT
  Age: 53 Year
  Sex: Female
  Weight: 89.3586 kg

DRUGS (14)
  1. VENTAVIS [Suspect]
     Indication: PULMONARY HYPERTENSION
     Dosage: 2.5 UG; ONCE; INH
     Route: 055
     Dates: start: 20050620, end: 20050620
  2. VENTAVIS [Suspect]
     Indication: PULMONARY HYPERTENSION
     Dosage: 5 UG; 6 TO 9X/DAY; INH
     Route: 055
     Dates: start: 20050620
  3. VENTAVIS [Suspect]
     Indication: PULMONARY HYPERTENSION
     Dosage: 5 UG; 7 TO 9X/DAY; INH
     Route: 055
  4. VENTAVIS [Suspect]
     Indication: PULMONARY HYPERTENSION
     Dosage: 5 UG; 9X/DAY; INH
     Route: 055
  5. VENTAVIS [Suspect]
     Indication: PULMONARY HYPERTENSION
     Dosage: 5 UG; 7 TO 9X/DAY; INH
     Route: 055
  6. PREDNISONE [Concomitant]
  7. HUMULIN N [Concomitant]
  8. TRACLEER [Concomitant]
  9. ALBUTEROL [Concomitant]
  10. ADVAIR DISKUS 100/50 [Concomitant]
  11. ATROVENT [Concomitant]
  12. VITAMIN CAP [Concomitant]
  13. FERROUS SULFATE TAB [Concomitant]
  14. CALCIUM CARBONATE [Concomitant]

REACTIONS (6)
  - BLOOD GLUCOSE DECREASED [None]
  - COUGH [None]
  - DIZZINESS [None]
  - FLUID RETENTION [None]
  - PHARYNGOLARYNGEAL PAIN [None]
  - PULMONARY ARTERIAL PRESSURE INCREASED [None]
